FAERS Safety Report 5628461-0 (Version None)
Quarter: 2008Q1

REPORT INFORMATION
  Report Type: 
  Country: None (occurrence: None)
  Receive Date: 20080215
  Receipt Date: 20080205
  Transmission Date: 20080703
  Serious: Yes (Life-Threatening, Other)
  Sender: FDA-Public Use
  Company Number: GB-PFIZER INC-2008004097

PATIENT
  Sex: Male

DRUGS (5)
  1. METHYLPREDNISOLONE ACETATE [Suspect]
     Indication: ARTHRITIS
     Dates: start: 20060328, end: 20060901
  2. PROPOFOL [Concomitant]
  3. ALFENTANIL [Concomitant]
  4. BUPIVACAINE [Concomitant]
  5. LIGNOCAINE [Concomitant]

REACTIONS (10)
  - ANGIOEDEMA [None]
  - DYSPNOEA [None]
  - ERYTHEMA [None]
  - HYPERHIDROSIS [None]
  - HYPERSENSITIVITY [None]
  - NAUSEA [None]
  - PRURITUS [None]
  - REACTION TO DRUG EXCIPIENTS [None]
  - URTICARIA [None]
  - VOMITING [None]
